FAERS Safety Report 5883227-1 (Version None)
Quarter: 2008Q3

REPORT INFORMATION
  Report Type: 
  Country: None (occurrence: None)
  Receive Date: 20080910
  Receipt Date: 20080826
  Transmission Date: 20090109
  Serious: Yes (Other)
  Sender: FDA-Public Use
  Company Number: 2008SP017778

PATIENT
  Age: 65 Year
  Sex: Male

DRUGS (4)
  1. INTRON A [Suspect]
     Dosage: QD; IV; TIW; SC
     Route: 042
     Dates: start: 20070101, end: 20080202
  2. INTRON A [Suspect]
     Dosage: QD; IV; TIW; SC
     Route: 042
     Dates: start: 20080205, end: 20080709
  3. INTRON A [Suspect]
     Dosage: QD; IV; TIW; SC
     Route: 042
     Dates: start: 20070101
  4. INTRON A [Suspect]
     Dosage: QD; IV; TIW; SC
     Route: 042
     Dates: start: 20070108

REACTIONS (10)
  - ASTHENIA [None]
  - HAEMATOTOXICITY [None]
  - HEPATOTOXICITY [None]
  - HYPERGAMMAGLOBULINAEMIA [None]
  - LYMPHADENOPATHY [None]
  - PRURITUS [None]
  - PYREXIA [None]
  - RED BLOOD CELL SEDIMENTATION RATE INCREASED [None]
  - SPLENOMEGALY [None]
  - URTICARIA [None]
